FAERS Safety Report 18686443 (Version 1)
Quarter: 2020Q4

REPORT INFORMATION
  Report Type: Spontaneous
  Country: US (occurrence: US)
  Receive Date: 20201230
  Receipt Date: 20201230
  Transmission Date: 20210114
  Serious: No
  Sender: FDA-Public Use
  Company Number: US-JNJFOC-20201249825

PATIENT
  Age: 28 Year
  Sex: Male

DRUGS (5)
  1. RISPERDAL [Suspect]
     Active Substance: RISPERIDONE
     Indication: ACUTE PSYCHOSIS
     Route: 065
  2. BENZTROPINE [BENZATROPINE] [Suspect]
     Active Substance: BENZTROPINE
  3. DIPHENHYDRAMINE. [Suspect]
     Active Substance: DIPHENHYDRAMINE
  4. HALOPERIDOL. [Suspect]
     Active Substance: HALOPERIDOL
     Indication: ACUTE PSYCHOSIS
     Route: 065
  5. VALPROIC ACID. [Suspect]
     Active Substance: VALPROIC ACID

REACTIONS (1)
  - Drug ineffective [Unknown]
